FAERS Safety Report 24207792 (Version 3)
Quarter: 2024Q3

REPORT INFORMATION
  Report Type: Spontaneous
  Country: US (occurrence: US)
  Receive Date: 20240814
  Receipt Date: 20240914
  Transmission Date: 20241017
  Serious: No
  Sender: GLAXOSMITHKLINE
  Company Number: US-GSKCCFUS-Case-02073652_AE-114691

PATIENT
  Age: 62 Year
  Sex: Male

DRUGS (1)
  1. BREO ELLIPTA [Suspect]
     Active Substance: FLUTICASONE FUROATE\VILANTEROL TRIFENATATE
     Indication: Product used for unknown indication
     Dosage: UNK; 100/25 MCG
     Dates: start: 20240807

REACTIONS (2)
  - Chest pain [Unknown]
  - Product complaint [Unknown]

NARRATIVE: CASE EVENT DATE: 20240807
